FAERS Safety Report 22842603 (Version 2)
Quarter: 2024Q3

REPORT INFORMATION
  Report Type: Report from Study
  Country: US (occurrence: US)
  Receive Date: 20230821
  Receipt Date: 20240811
  Transmission Date: 20241016
  Serious: No
  Sender: NOVARTIS
  Company Number: US-002147023-NVSC2023US179358

PATIENT
  Sex: Female

DRUGS (1)
  1. COSENTYX [Suspect]
     Active Substance: SECUKINUMAB
     Indication: Psoriasis
     Dosage: UNK
     Route: 065

REACTIONS (12)
  - Seborrhoeic keratosis [Unknown]
  - Skin papilloma [Unknown]
  - Dysplastic naevus [Unknown]
  - Skin hyperpigmentation [Unknown]
  - Pseudocyst [Unknown]
  - Psoriasis [Unknown]
  - Pruritus [Unknown]
  - Skin exfoliation [Unknown]
  - Macule [Unknown]
  - Papule [Unknown]
  - Therapeutic product effect incomplete [Unknown]
  - Illness [Unknown]
